FAERS Safety Report 18568018 (Version 2)
Quarter: 2021Q1

REPORT INFORMATION
  Report Type: Other
  Country: US (occurrence: US)
  Receive Date: 20201202
  Receipt Date: 20210324
  Transmission Date: 20210419
  Serious: Yes (Other)
  Sender: FDA-Public Use
  Company Number: US-ROCHE-2721875

PATIENT

DRUGS (1)
  1. TRASTUZUMAB. [Suspect]
     Active Substance: TRASTUZUMAB
     Indication: NEOPLASM MALIGNANT
     Route: 065

REACTIONS (8)
  - Myocardial calcification [Unknown]
  - Eosinophilic myocarditis [Unknown]
  - Viral myocarditis [Unknown]
  - Autoimmune myocarditis [Unknown]
  - Cardiac sarcoidosis [Unknown]
  - Lymphoma [Unknown]
  - Histoplasmosis [Unknown]
  - Ischaemic cardiomyopathy [Unknown]
